FAERS Safety Report 9900753 (Version 1)
Quarter: 2014Q1

REPORT INFORMATION
  Report Type: Report from Study
  Country: US (occurrence: US)
  Receive Date: 20140217
  Receipt Date: 20140217
  Transmission Date: 20141002
  Serious: No
  Sender: FDA-Public Use
  Company Number: US-009507513-1402USA006972

PATIENT
  Age: 20 Year
  Sex: Female

DRUGS (1)
  1. IMPLANON [Suspect]
     Dosage: 68 MG, UNK
     Dates: start: 201204, end: 20140213

REACTIONS (3)
  - Medical device removal [Unknown]
  - Weight increased [Unknown]
  - Breast enlargement [Unknown]
